FAERS Safety Report 11170762 (Version 1)
Quarter: 2015Q2

REPORT INFORMATION
  Report Type: Spontaneous
  Country: US (occurrence: None)
  Receive Date: 20150604
  Receipt Date: 20150604
  Transmission Date: 20150821
  Serious: Yes (Life-Threatening, Other)
  Sender: FDA-Public Use
  Company Number: None

PATIENT
  Age: 37 Year
  Sex: Female
  Weight: 61.24 kg

DRUGS (2)
  1. DIGOXIN 25 MG GLO [Suspect]
     Active Substance: DIGOXIN
     Dosage: 30?ONCE DAILY?TAKEN BY MOUTH
     Route: 048
     Dates: start: 20150504, end: 20150603
  2. DIGOXIN 25 MG GLO [Suspect]
     Active Substance: DIGOXIN
     Indication: HEART RATE DECREASED
     Dosage: 30?ONCE DAILY?TAKEN BY MOUTH
     Route: 048
     Dates: start: 20150504, end: 20150603

REACTIONS (6)
  - Nausea [None]
  - Diarrhoea [None]
  - Asthenia [None]
  - Malaise [None]
  - Dyspnoea [None]
  - Drug level increased [None]

NARRATIVE: CASE EVENT DATE: 20150505
